FAERS Safety Report 20112987 (Version 4)
Quarter: 2022Q1

REPORT INFORMATION
  Report Type: Spontaneous
  Country: US (occurrence: US)
  Receive Date: 20211125
  Receipt Date: 20220303
  Transmission Date: 20220423
  Serious: Yes (Other)
  Sender: FDA-Public Use
  Company Number: US-EXELIXIS-CABO-21046257

PATIENT
  Age: 63 Year
  Sex: Female

DRUGS (2)
  1. OPDIVO [Suspect]
     Active Substance: NIVOLUMAB
     Indication: Renal cancer
     Dosage: UNK
     Route: 065
  2. CABOMETYX [Suspect]
     Active Substance: CABOZANTINIB S-MALATE
     Indication: Renal cancer
     Dosage: 20 MG, QD
     Route: 048
     Dates: end: 20220202

REACTIONS (5)
  - Malignant neoplasm progression [Unknown]
  - Skin exfoliation [Unknown]
  - Pain in extremity [Unknown]
  - Fatigue [Unknown]
  - Urinary tract infection [Recovering/Resolving]
